FAERS Safety Report 6269084-2 (Version None)
Quarter: 2009Q3

REPORT INFORMATION
  Report Type: 
  Country: None (occurrence: None)
  Receive Date: 20090715
  Receipt Date: 20090715
  Transmission Date: 20100115
  Serious: Yes (Hospitalization, Other)
  Sender: FDA-Public Use
  Company Number: JP-PFIZER INC-2009233744

PATIENT
  Age: 58 Year

DRUGS (12)
  1. CABERGOLINE [Suspect]
     Indication: PITUITARY TUMOUR BENIGN
     Dosage: 0.25 MG, 1X/DAY
     Route: 048
     Dates: start: 20090612, end: 20090601
  2. CABERGOLINE [Suspect]
     Dosage: 0.5 MG, 1X/DAY
     Dates: start: 20090619, end: 20090619
  3. VALERIN [Suspect]
     Indication: EPILEPSY
     Dosage: 200 MG, 3X/DAY
     Route: 048
     Dates: start: 19930728
  4. DEPAKENE [Suspect]
     Indication: EPILEPSY
     Dosage: FREQUENCY: 4X/DAY,
     Route: 048
     Dates: start: 19930728
  5. ALEVIATIN [Suspect]
  6. CORTRIL [Concomitant]
     Dosage: UNK
     Route: 048
     Dates: start: 20090223
  7. THYRADIN [Concomitant]
     Dosage: UNK
     Route: 048
     Dates: start: 20090223
  8. METLIGINE [Concomitant]
     Dosage: UNK
     Route: 048
     Dates: start: 19940812
  9. PURSENNID [Concomitant]
     Dosage: UNK
     Route: 048
  10. MAGNESIUM OXIDE [Concomitant]
     Dosage: UNK
     Route: 048
  11. CERCINE [Concomitant]
     Dosage: UNK
     Route: 048
  12. PHENOBARBITAL TAB [Concomitant]
     Dosage: UNK
     Route: 048

REACTIONS (3)
  - ASTHENIA [None]
  - FALL [None]
  - SOMNOLENCE [None]
